FAERS Safety Report 8624454-X (Version None)
Quarter: 2012Q3

REPORT INFORMATION
  Report Type: 
  Country: None (occurrence: None)
  Receive Date: 20120827
  Receipt Date: 20120821
  Transmission Date: 20120928
  Serious: Yes (Other)
  Sender: FDA-Public Use
  Company Number: US-PFIZER INC-2012152517

PATIENT
  Sex: Female

DRUGS (1)
  1. LYRICA [Suspect]
     Dosage: UNK

REACTIONS (5)
  - FIBROMYALGIA [None]
  - NEOPLASM MALIGNANT [None]
  - BLADDER CANCER [None]
  - NEUROPATHY PERIPHERAL [None]
  - PANIC ATTACK [None]
